FAERS Safety Report 16026662 (Version 1)
Quarter: 2019Q1

REPORT INFORMATION
  Report Type: Spontaneous
  Country: US (occurrence: US)
  Receive Date: 20190303
  Receipt Date: 20190303
  Transmission Date: 20190418
  Serious: No
  Sender: FDA-Public Use
  Company Number: US-JNJFOC-20190201395

PATIENT
  Sex: Female

DRUGS (1)
  1. TYLENOL [Suspect]
     Active Substance: ACETAMINOPHEN
     Indication: PAIN IN EXTREMITY
     Dosage: JUST AT THE BEDTOME WHEN I GO TO SLEEP AND TRY TO SLEEP AND MY LEGS HURTS SO BAD.
     Route: 065

REACTIONS (1)
  - Drug ineffective [Unknown]
